FAERS Safety Report 7384734-5 (Version None)
Quarter: 2011Q1

REPORT INFORMATION
  Report Type: 
  Country: None (occurrence: None)
  Receive Date: 20110330
  Receipt Date: 20110316
  Transmission Date: 20110831
  Serious: Yes (Hospitalization)
  Sender: FDA-Public Use
  Company Number: PHHY2011MX22322

PATIENT
  Age: 77 Year
  Sex: Female

DRUGS (1)
  1. DIOVAN [Suspect]
     Indication: HYPERTENSION
     Dosage: 80 MG, 1 TABLET (80 MG) PER DAY
     Dates: start: 20000101

REACTIONS (1)
  - LIMB DISCOMFORT [None]
